FAERS Safety Report 6051863-8 (Version None)
Quarter: 2009Q1

REPORT INFORMATION
  Report Type: 
  Country: None (occurrence: None)
  Receive Date: 20090126
  Receipt Date: 20090120
  Transmission Date: 20090719
  Serious: Yes (Other)
  Sender: FDA-Public Use
  Company Number: CA-ABBOTT-09P-028-0498868-00

PATIENT
  Sex: Female
  Weight: 54.48 kg

DRUGS (8)
  1. HUMIRA [Suspect]
     Indication: RHEUMATOID ARTHRITIS
     Route: 058
     Dates: start: 20080123
  2. I-CAPS [Concomitant]
     Indication: DRUG USE FOR UNKNOWN INDICATION
  3. MAXI VUE TROPIC [Concomitant]
     Indication: DRUG USE FOR UNKNOWN INDICATION
  4. ADALAT [Concomitant]
     Indication: DRUG USE FOR UNKNOWN INDICATION
  5. DRISDOLE [Concomitant]
     Indication: DRUG USE FOR UNKNOWN INDICATION
  6. CALCIUM [Concomitant]
     Indication: DRUG USE FOR UNKNOWN INDICATION
  7. ACTONEL [Concomitant]
     Indication: DRUG USE FOR UNKNOWN INDICATION
  8. VITAMIN D [Concomitant]
     Indication: DRUG USE FOR UNKNOWN INDICATION

REACTIONS (4)
  - FOREIGN BODY IN EYE [None]
  - MACULAR DEGENERATION [None]
  - PSORIASIS [None]
  - SKIN PLAQUE [None]
